FAERS Safety Report 5142892-7 (Version None)
Quarter: 2006Q4

REPORT INFORMATION
  Report Type: 
  Country: None (occurrence: None)
  Receive Date: 20061030
  Receipt Date: 20061016
  Transmission Date: 20070319
  Serious: Yes (Life-Threatening, Hospitalization)
  Sender: FDA-Public Use
  Company Number: 15014

PATIENT
  Sex: Female
  Weight: 87 kg

DRUGS (6)
  1. METHOTREXATE [Suspect]
  2. ENBREL [Suspect]
     Indication: RHEUMATOID ARTHRITIS
     Dosage: 25 MG 2/WK SC
     Route: 058
     Dates: start: 20040201, end: 20040601
  3. AZATHIOPRINE [Concomitant]
  4. LORAZEPAM [Concomitant]
  5. ACETAMINOPHEN [Concomitant]
  6. PREDNISOLONE [Concomitant]

REACTIONS (4)
  - EPSTEIN-BARR VIRUS TEST POSITIVE [None]
  - NON-HODGKIN'S LYMPHOMA [None]
  - ORBITAL OEDEMA [None]
  - RETINAL OEDEMA [None]
